FAERS Safety Report 11359532 (Version 1)
Quarter: 2015Q3

REPORT INFORMATION
  Report Type: Spontaneous
  Country: US (occurrence: None)
  Receive Date: 20150807
  Receipt Date: 20150807
  Transmission Date: 20151125
  Serious: Yes (Hospitalization, Disabling)
  Sender: FDA-Public Use
  Company Number: None

PATIENT
  Age: 75 Year
  Sex: Female
  Weight: 65.77 kg

DRUGS (16)
  1. ALPHALIPAC ACID [Concomitant]
  2. TART CHERRY EXTRACT [Concomitant]
  3. VITAMIN C [Concomitant]
     Active Substance: ASCORBIC ACID
  4. B-50 [Concomitant]
  5. LEVOFLOXACIN. [Suspect]
     Active Substance: LEVOFLOXACIN
     Indication: PNEUMONIA
     Dosage: BY MOUTH
     Route: 048
     Dates: start: 20150707, end: 20150712
  6. COQ10 [Concomitant]
     Active Substance: UBIDECARENONE
  7. NAC [Concomitant]
  8. OMEGA 3^S [Concomitant]
  9. BILBERRY [Concomitant]
     Active Substance: BILBERRY
  10. LANQININE [Concomitant]
  11. IODERAL + PROBIOTICS [Concomitant]
  12. MULTIVITAMIN [Concomitant]
     Active Substance: VITAMINS
  13. SELENIUM [Concomitant]
     Active Substance: SELENIUM
  14. VITAMIN D3 [Concomitant]
     Active Substance: CHOLECALCIFEROL
  15. LUTEIN [Concomitant]
     Active Substance: LUTEIN
  16. SUPER K [Concomitant]

REACTIONS (7)
  - Visual impairment [None]
  - Body temperature increased [None]
  - Loss of consciousness [None]
  - Vertigo [None]
  - Hyperhidrosis [None]
  - Fall [None]
  - Spinal compression fracture [None]

NARRATIVE: CASE EVENT DATE: 20150712
